FAERS Safety Report 4636401-6 (Version None)
Quarter: 2005Q2

REPORT INFORMATION
  Report Type: 
  Country: None (occurrence: None)
  Receive Date: 20050415
  Receipt Date: 20050405
  Transmission Date: 20051028
  Serious: Yes (Congenital Anomaly, Other)
  Sender: FDA-Public Use
  Company Number: US-JNJFOC-20050402839

PATIENT
  Sex: Male
  Weight: 2.79 kg

DRUGS (3)
  1. ORTHO TRI-CYCLEN LO [Suspect]
  2. ATENOLOL [Concomitant]
  3. ZYRTEC [Concomitant]

REACTIONS (1)
  - HYDRONEPHROSIS [None]
